FAERS Safety Report 5526437-5 (Version None)
Quarter: 2007Q4

REPORT INFORMATION
  Report Type: 
  Country: None (occurrence: None)
  Receive Date: 20071121
  Receipt Date: 20071121
  Transmission Date: 20080405
  Serious: Yes (Hospitalization)
  Sender: FDA-Public Use
  Company Number: None

PATIENT
  Age: 83 Year
  Sex: Male

DRUGS (2)
  1. AZITHROMYCIN [Suspect]
     Indication: PNEUMONIA
     Dosage: 500MG EVERY DAY IV
     Route: 042
     Dates: start: 20061218, end: 20061219
  2. CEFTRIAXONE [Suspect]
     Dosage: 2GM EVERY DAY IV
     Route: 042
     Dates: start: 20061218, end: 20061220

REACTIONS (3)
  - CONFUSIONAL STATE [None]
  - PRURITUS [None]
  - RASH [None]
